FAERS Safety Report 10202105 (Version 1)
Quarter: 2014Q2

REPORT INFORMATION
  Report Type: Spontaneous
  Country: BR (occurrence: BR)
  Receive Date: 20140528
  Receipt Date: 20140528
  Transmission Date: 20141212
  Serious: Yes (Other)
  Sender: FDA-Public Use
  Company Number: BR-GLAXOSMITHKLINE-A1074602A

PATIENT
  Sex: Male
  Weight: 92 kg

DRUGS (4)
  1. SERETIDE [Suspect]
     Indication: BRONCHIECTASIS
     Dosage: 1PUFF TWICE PER DAY
     Route: 065
     Dates: start: 2010
  2. SPIRIVA [Concomitant]
  3. PREDNISONE [Concomitant]
  4. AZITHROMYCIN [Concomitant]

REACTIONS (9)
  - Cerebrovascular accident [Unknown]
  - Face oedema [Not Recovered/Not Resolved]
  - Pharyngeal oedema [Not Recovered/Not Resolved]
  - Throat irritation [Not Recovered/Not Resolved]
  - Bronchospasm [Not Recovered/Not Resolved]
  - Cough [Not Recovered/Not Resolved]
  - Facial spasm [Not Recovered/Not Resolved]
  - Hypoaesthesia [Not Recovered/Not Resolved]
  - Candida infection [Not Recovered/Not Resolved]
